FAERS Safety Report 17001152 (Version 2)
Quarter: 2020Q1

REPORT INFORMATION
  Report Type: Spontaneous
  Country: JP (occurrence: JP)
  Receive Date: 20191106
  Receipt Date: 20200115
  Transmission Date: 20200409
  Serious: Yes (Hospitalization)
  Sender: FDA-Public Use
  Company Number: JP-EISAI MEDICAL RESEARCH-EC-2019-064770

PATIENT
  Age: 52 Year
  Sex: Female

DRUGS (4)
  1. E KEPPRA [Concomitant]
     Active Substance: LEVETIRACETAM
     Indication: PSYCHOGENIC SEIZURE
     Route: 048
  2. FYCOMPA [Suspect]
     Active Substance: PERAMPANEL
     Indication: PSYCHOGENIC SEIZURE
     Route: 048
     Dates: start: 20190727, end: 20190902
  3. E KEPPRA [Concomitant]
     Active Substance: LEVETIRACETAM
     Dosage: DOSAGE REDUCED; FREQUENCY UNKNOWN
  4. FYCOMPA [Suspect]
     Active Substance: PERAMPANEL
     Route: 048
     Dates: start: 20190903, end: 20190906

REACTIONS (1)
  - Ataxia [Recovered/Resolved]

NARRATIVE: CASE EVENT DATE: 20190906
